FAERS Safety Report 18926410 (Version 3)
Quarter: 2022Q1

REPORT INFORMATION
  Report Type: Report from Study
  Country: CA (occurrence: CA)
  Receive Date: 20210222
  Receipt Date: 20220126
  Transmission Date: 20220423
  Serious: Yes (Other)
  Sender: FDA-Public Use
  Company Number: CA-ABBVIE-21K-028-3780055-00

PATIENT
  Age: 55 Year
  Sex: Male

DRUGS (2)
  1. HUMIRA [Suspect]
     Active Substance: ADALIMUMAB
     Indication: Crohn^s disease
     Route: 058
     Dates: start: 20180624, end: 202008
  2. HUMIRA [Suspect]
     Active Substance: ADALIMUMAB
     Route: 058
     Dates: start: 2020

REACTIONS (4)
  - Post procedural haemorrhage [Recovered/Resolved]
  - Ingrowing nail [Unknown]
  - Nail infection [Unknown]
  - Crohn^s disease [Recovered/Resolved]

NARRATIVE: CASE EVENT DATE: 20200801
